FAERS Safety Report 6661892-9 (Version None)
Quarter: 2010Q1

REPORT INFORMATION
  Report Type: 
  Country: None (occurrence: None)
  Receive Date: 20100331
  Receipt Date: 20090922
  Transmission Date: 20100710
  Serious: Yes (Death)
  Sender: FDA-Public Use
  Company Number: US-BRISTOL-MYERS SQUIBB COMPANY-14783575

PATIENT
  Age: 67 Year
  Sex: Male

DRUGS (9)
  1. ERBITUX [Suspect]
     Indication: HEAD AND NECK CANCER
     Dosage: THERAPY-4 TO 5 WKS,02JUL09-23JUL09/400MG
     Route: 042
     Dates: start: 20090623
  2. RADIATION THERAPY [Suspect]
     Indication: HEAD AND NECK CANCER
     Dosage: THERAPY-4 TO 5 WKS
     Dates: start: 20090623
  3. PLAVIX [Concomitant]
     Route: 048
  4. BENADRYL [Concomitant]
     Indication: PREMEDICATION
     Route: 042
  5. DECADRON [Concomitant]
     Indication: PREMEDICATION
     Route: 042
  6. PROCARDIA [Concomitant]
     Route: 048
  7. NEXIUM [Concomitant]
     Route: 048
  8. ASPIRIN [Concomitant]
     Route: 048
  9. METFORMIN (GLUCOPHAGE) [Concomitant]

REACTIONS (1)
  - DEATH [None]
